FAERS Safety Report 6275377-5 (Version None)
Quarter: 2009Q3

REPORT INFORMATION
  Report Type: 
  Country: None (occurrence: None)
  Receive Date: 20090721
  Receipt Date: 20090713
  Transmission Date: 20100115
  Serious: Yes (Death, Other)
  Sender: FDA-Public Use
  Company Number: IN-GENENTECH-286977

PATIENT
  Age: 70 Year
  Sex: Female

DRUGS (1)
  1. ACTIVASE [Suspect]
     Indication: ISCHAEMIC STROKE
     Dosage: 70 MG, UNK
     Route: 042
     Dates: start: 20090710, end: 20090710

REACTIONS (2)
  - CEREBRAL HAEMORRHAGE [None]
  - DEATH [None]
